FAERS Safety Report 22325294 (Version 1)
Quarter: 2023Q2

REPORT INFORMATION
  Report Type: Spontaneous
  Country: US (occurrence: US)
  Receive Date: 20230516
  Receipt Date: 20230516
  Transmission Date: 20230722
  Serious: No
  Sender: FDA-Public Use
  Company Number: US-Calliditas-2023CAL00459

PATIENT
  Age: 57 Year
  Sex: Male

DRUGS (1)
  1. TARPEYO [Suspect]
     Active Substance: BUDESONIDE
     Indication: IgA nephropathy
     Dosage: 16 MG (4 MG CAPSULES) ONCE DAILY
     Route: 048
     Dates: start: 20230426

REACTIONS (6)
  - Arthralgia [Unknown]
  - Muscle spasms [Unknown]
  - Mood altered [Unknown]
  - Irritability [Unknown]
  - Productive cough [Unknown]
  - Respiratory tract infection [Unknown]
